FAERS Safety Report 4966454-7 (Version None)
Quarter: 2006Q2

REPORT INFORMATION
  Report Type: 
  Country: None (occurrence: None)
  Receive Date: 20060403
  Receipt Date: 20060324
  Transmission Date: 20061013
  Serious: Yes (Other)
  Sender: FDA-Public Use
  Company Number: 2006SP001379

PATIENT
  Age: 6 Year
  Sex: Female

DRUGS (2)
  1. XOPENEX [Suspect]
     Indication: ASTHMA
     Dosage: INHALATION
     Route: 055
     Dates: start: 20051201
  2. ANTI-ASTHMATICS [Concomitant]

REACTIONS (3)
  - PANIC ATTACK [None]
  - PETIT MAL EPILEPSY [None]
  - TACHYCARDIA [None]
